FAERS Safety Report 5379853-9 (Version None)
Quarter: 2007Q3

REPORT INFORMATION
  Report Type: 
  Country: None (occurrence: None)
  Receive Date: 20070703
  Receipt Date: 20070620
  Transmission Date: 20080115
  Serious: Yes (Other)
  Sender: FDA-Public Use
  Company Number: 2007JP002799

PATIENT
  Sex: Male

DRUGS (4)
  1. PROGRAF(TACROLIMUS0 FORMULATION UNKNOWN [Suspect]
     Indication: RHEUMATOID ARTHRITIS
     Dosage: 3 MG/D, ORAL
     Route: 048
  2. PREDNISOLONE [Suspect]
     Dosage: 7 MG/D, ORAL
     Route: 048
  3. LORCAM (LORNOXICAM) FORMULATION UNKNOWN [Suspect]
  4. MOBIC (MELOXICAM) PER ORAL NOS [Concomitant]

REACTIONS (1)
  - INTESTINAL ISCHAEMIA [None]
